FAERS Safety Report 18429728 (Version 2)
Quarter: 2020Q4

REPORT INFORMATION
  Report Type: Spontaneous
  Country: US (occurrence: US)
  Receive Date: 20201026
  Receipt Date: 20201201
  Transmission Date: 20210114
  Serious: Yes (Death, Hospitalization, Other)
  Sender: FDA-Public Use
  Company Number: US-GILEAD-2020-0501205

PATIENT
  Age: 86 Year
  Sex: Male
  Weight: 92.9 kg

DRUGS (22)
  1. EPINEPHRINE. [Concomitant]
     Active Substance: EPINEPHRINE
  2. ACETAMINOPHEN. [Concomitant]
     Active Substance: ACETAMINOPHEN
  3. CALCIUM GLUCONATE. [Concomitant]
     Active Substance: CALCIUM GLUCONATE
  4. HEPARIN [Concomitant]
     Active Substance: HEPARIN SODIUM
  5. DIGOXIN. [Concomitant]
     Active Substance: DIGOXIN
  6. SODIUM BICARBONATE. [Concomitant]
     Active Substance: SODIUM BICARBONATE
  7. FUROSEMIDE. [Concomitant]
     Active Substance: FUROSEMIDE
  8. ENOXAPARIN [Concomitant]
     Active Substance: ENOXAPARIN
  9. REMDESIVIR. [Suspect]
     Active Substance: REMDESIVIR
     Indication: COVID-19
     Dosage: 200 MG, ONCE
     Route: 042
     Dates: start: 20201018, end: 20201021
  10. INSULIN GLARGINE [Concomitant]
     Active Substance: INSULIN GLARGINE
  11. POLYETHYLENE GLYCOL 3350. [Concomitant]
     Active Substance: POLYETHYLENE GLYCOL 3350
  12. NOREPINEPHRINE. [Concomitant]
     Active Substance: NOREPINEPHRINE
  13. MAGNESIUM SULFATE. [Concomitant]
     Active Substance: MAGNESIUM SULFATE
  14. MODAFINIL. [Concomitant]
     Active Substance: MODAFINIL
  15. VANCOMYCIN [Concomitant]
     Active Substance: VANCOMYCIN
  16. MEROPENEM. [Concomitant]
     Active Substance: MEROPENEM
  17. OXYCODONE [Concomitant]
     Active Substance: OXYCODONE
  18. GABAPENTIN. [Concomitant]
     Active Substance: GABAPENTIN
  19. WARFARIN [Concomitant]
     Active Substance: WARFARIN
  20. ATROPINE. [Concomitant]
     Active Substance: ATROPINE
  21. FENTANYL. [Concomitant]
     Active Substance: FENTANYL
  22. MORPHINE [Concomitant]
     Active Substance: MORPHINE

REACTIONS (4)
  - Respiratory failure [Not Recovered/Not Resolved]
  - Atrial fibrillation [Not Recovered/Not Resolved]
  - Expired product administered [Recovered/Resolved]
  - Pulseless electrical activity [Fatal]

NARRATIVE: CASE EVENT DATE: 20201018
